FAERS Safety Report 5526999-8 (Version None)
Quarter: 2007Q4

REPORT INFORMATION
  Report Type: 
  Country: None (occurrence: None)
  Receive Date: 20071127
  Receipt Date: 20071113
  Transmission Date: 20080405
  Serious: Yes (Hospitalization)
  Sender: FDA-Public Use
  Company Number: TR-RANBAXY-2007RR-11449

PATIENT

DRUGS (4)
  1. LAMIVUDINE [Suspect]
     Indication: HEPATITIS B POSITIVE
  2. TACROLIMUS [Suspect]
  3. SODIUM BICARBONATE [Concomitant]
  4. SIROLIMUS [Concomitant]

REACTIONS (2)
  - FANCONI SYNDROME [None]
  - MYOPATHY [None]
